FAERS Safety Report 21852713 (Version 4)
Quarter: 2023Q4

REPORT INFORMATION
  Report Type: Other
  Country: IT (occurrence: IT)
  Receive Date: 20230112
  Receipt Date: 20231208
  Transmission Date: 20240109
  Serious: Yes (Hospitalization, Other)
  Sender: FDA-Public Use
  Company Number: IT-CELLTRION HEALTHCARE HUNGARY KFT-2022IT019911

PATIENT
  Age: 83 Year
  Sex: Male
  Weight: 62 kg

DRUGS (8)
  1. RITUXIMAB [Suspect]
     Active Substance: RITUXIMAB
     Indication: Splenic marginal zone lymphoma
     Dosage: 375 MG/M2 (655.5 MG) (WEEKLY FOR CYCLE 1 AND THEN ON DAY 1 OF CYCLES 2 TO 5)
     Route: 041
     Dates: start: 20221103, end: 20221107
  2. LENALIDOMIDE [Suspect]
     Active Substance: LENALIDOMIDE
     Indication: Splenic marginal zone lymphoma
     Dosage: 20 MILLIGRAM, QD (ON DAY 1 TO 21 OF EACH 28-DAY CYCLES 1 TO 12)
     Route: 065
     Dates: start: 20221102, end: 20221107
  3. LENALIDOMIDE [Suspect]
     Active Substance: LENALIDOMIDE
     Dosage: 2
     Route: 065
     Dates: start: 20221110
  4. TAFASITAMAB-CXIX [Suspect]
     Active Substance: TAFASITAMAB-CXIX
     Indication: Splenic marginal zone lymphoma
     Dosage: 12 MG/KG (744 MG) (WEEKLY FOR CYCLES 1 TO 3 AND THEN ON DAYS 1 AND 15 FOR CYCLES 4 TO 12)
     Route: 065
     Dates: start: 20221102, end: 20221104
  5. ACETAMINOPHEN [Concomitant]
     Active Substance: ACETAMINOPHEN
     Dosage: UNK
     Dates: start: 20221102, end: 20221102
  6. CHLORPHENIRAMINE MALEATE [Concomitant]
     Active Substance: CHLORPHENIRAMINE MALEATE
     Dosage: UNK
     Dates: start: 20221102, end: 20221102
  7. METHYLPREDNISOLONE [Concomitant]
     Active Substance: METHYLPREDNISOLONE
     Dosage: UNK
     Dates: start: 20221102, end: 20221102
  8. ENOXAPARIN SODIUM [Concomitant]
     Active Substance: ENOXAPARIN SODIUM
     Dosage: UNK
     Dates: start: 20221102

REACTIONS (6)
  - Off label use [Unknown]
  - Internal haemorrhage [Unknown]
  - Septic shock [Recovered/Resolved]
  - Pyrexia [Not Recovered/Not Resolved]
  - Splenic rupture [Recovered/Resolved]
  - Sepsis [Recovered/Resolved]

NARRATIVE: CASE EVENT DATE: 20221104
